FAERS Safety Report 6334958-0 (Version None)
Quarter: 2009Q3

REPORT INFORMATION
  Report Type: 
  Country: None (occurrence: None)
  Receive Date: 20090831
  Receipt Date: 20090819
  Transmission Date: 20100115
  Serious: Yes (Other)
  Sender: FDA-Public Use
  Company Number: GB-PFIZER INC-2009256617

PATIENT
  Age: 51 Year

DRUGS (13)
  1. PREGABALIN [Suspect]
     Indication: PAIN
     Dosage: 75 MG, UNK
     Route: 048
     Dates: start: 20090623, end: 20090702
  2. PREGABALIN [Suspect]
     Indication: FIBROMYALGIA
  3. AMITRIPTYLINE HYDROCHLORIDE [Concomitant]
     Indication: FIBROMYALGIA
     Dosage: 25 MG, 2X/DAY
     Route: 048
     Dates: end: 20090623
  4. BUDESONIDE [Concomitant]
     Indication: ASTHMA
     Dosage: 2 DF, UNK
     Route: 055
  5. CLONIDINE [Concomitant]
     Indication: MENOPAUSAL SYMPTOMS
     Dosage: 50 UG, 2X/DAY
     Route: 048
  6. CO-CODAMOL [Concomitant]
     Indication: FIBROMYALGIA
     Route: 048
  7. LOPERAMIDE [Concomitant]
     Indication: IRRITABLE BOWEL SYNDROME
     Dosage: 2 MG, AS NEEDED
     Route: 048
  8. MALIC ACID [Concomitant]
     Dosage: 7.6 MG, UNK
     Route: 048
  9. MEBEVERINE [Concomitant]
     Indication: IRRITABLE BOWEL SYNDROME
     Dosage: 135 MG, 3X/DAY
     Route: 048
  10. PEPPERMINT OIL [Concomitant]
     Indication: IRRITABLE BOWEL SYNDROME
     Dosage: 0.2 ML, 3X/DAY
     Route: 048
  11. REPLENS [Concomitant]
     Indication: MENOPAUSAL SYMPTOMS
     Dosage: 1 DF, TWICE WEEKLY
     Route: 067
  12. SALBUTAMOL [Concomitant]
     Indication: ASTHMA
     Route: 055
  13. ZOPICLONE [Concomitant]
     Indication: FIBROMYALGIA
     Dosage: 7.5 MG, 1X/DAY
     Route: 048

REACTIONS (7)
  - AGITATION [None]
  - DEPRESSED MOOD [None]
  - DYSPEPSIA [None]
  - HOT FLUSH [None]
  - MOOD SWINGS [None]
  - PANIC ATTACK [None]
  - SENSATION OF FOREIGN BODY [None]
